FAERS Safety Report 4651879-X (Version None)
Quarter: 2005Q2

REPORT INFORMATION
  Report Type: 
  Country: None (occurrence: None)
  Receive Date: 20050504
  Receipt Date: 20050419
  Transmission Date: 20051028
  Serious: Yes (Other)
  Sender: FDA-Public Use
  Company Number: JP-GLAXOSMITHKLINE-B0378686A

PATIENT
  Age: 54 Year
  Sex: Male
  Weight: 73 kg

DRUGS (8)
  1. PAXIL [Suspect]
     Indication: DEPRESSION
     Dosage: 20MG PER DAY
     Route: 048
     Dates: start: 20050318, end: 20050320
  2. ANAFRANIL CAP [Concomitant]
     Indication: DEPRESSION
     Route: 048
     Dates: start: 20050217
  3. TOFRANIL [Concomitant]
     Indication: DEPRESSION
     Route: 048
     Dates: start: 20050217
  4. BENZALIN [Concomitant]
     Indication: INSOMNIA
     Dosage: 5MG PER DAY
     Route: 048
     Dates: start: 20050321, end: 20050322
  5. AMOBAN [Concomitant]
     Indication: INSOMNIA
     Dosage: 7.5MG PER DAY
     Route: 048
     Dates: start: 20050308, end: 20050323
  6. SEDIEL [Concomitant]
     Indication: ANXIETY
     Route: 048
     Dates: start: 20050308, end: 20050324
  7. RISUMIC [Concomitant]
     Indication: HYPOTENSION
     Dosage: 20MG PER DAY
     Route: 048
     Dates: start: 20050217
  8. HIRNAMIN [Concomitant]
     Route: 048
     Dates: start: 20050321

REACTIONS (4)
  - ABNORMAL BEHAVIOUR [None]
  - DELIRIUM [None]
  - INCOHERENT [None]
  - RESTLESSNESS [None]
